FAERS Safety Report 9699148 (Version 1)
Quarter: 2013Q4

REPORT INFORMATION
  Report Type: Spontaneous
  Country: US (occurrence: US)
  Receive Date: 20131120
  Receipt Date: 20131120
  Transmission Date: 20140711
  Serious: No
  Sender: FDA-Public Use
  Company Number: US-GILEAD-2007-0014723

PATIENT
  Age: 57 Year
  Sex: Female
  Weight: 44.91 kg

DRUGS (8)
  1. LETAIRIS [Suspect]
     Indication: PULMONARY ARTERIAL HYPERTENSION
     Route: 048
     Dates: start: 20070831
  2. REVATIO [Concomitant]
     Indication: PULMONARY ARTERIAL HYPERTENSION
     Route: 048
  3. LASIX [Concomitant]
     Indication: PULMONARY ARTERIAL HYPERTENSION
     Route: 048
  4. OXYGEN [Concomitant]
     Indication: PULMONARY ARTERIAL HYPERTENSION
     Dosage: CONT.
     Route: 055
  5. FERROUS SULFATE [Concomitant]
     Indication: ANAEMIA
     Route: 048
  6. NEXIUM [Concomitant]
     Indication: GASTROOESOPHAGEAL REFLUX DISEASE
     Route: 048
  7. TYLENOL [Concomitant]
     Indication: PAIN
     Route: 048
  8. MULTIVITAMINS [Concomitant]
     Indication: NUTRITIONAL SUPPLEMENTATION
     Route: 048

REACTIONS (1)
  - Diarrhoea [Not Recovered/Not Resolved]
